FAERS Safety Report 10480261 (Version 1)
Quarter: 2014Q3

REPORT INFORMATION
  Report Type: Spontaneous
  Country: BR (occurrence: BR)
  Receive Date: 20140929
  Receipt Date: 20140929
  Transmission Date: 20150326
  Serious: Yes (Hospitalization)
  Sender: FDA-Public Use
  Company Number: BR-JNJFOC-20140921841

PATIENT
  Sex: Male
  Weight: 50 kg

DRUGS (13)
  1. ZOLADEX [Concomitant]
     Active Substance: GOSERELIN ACETATE
     Indication: PROSTATE CANCER
     Route: 065
     Dates: start: 2009
  2. SPIRIVA [Concomitant]
     Active Substance: TIOTROPIUM BROMIDE MONOHYDRATE
     Indication: LUNG DISORDER
     Route: 065
     Dates: start: 2010
  3. QUETIAPINE [Concomitant]
     Active Substance: QUETIAPINE
     Indication: NERVOUS SYSTEM DISORDER
     Route: 065
  4. IMOSEC [Suspect]
     Active Substance: LOPERAMIDE
     Route: 048
  5. ZOLPIDEM HEMITARTRAAT [Concomitant]
     Indication: NERVOUS SYSTEM DISORDER
     Route: 065
  6. DIGOXIN. [Concomitant]
     Active Substance: DIGOXIN
     Indication: CARDIAC DISORDER
     Route: 065
  7. IMOSEC [Suspect]
     Active Substance: LOPERAMIDE
     Indication: DIARRHOEA
     Route: 048
  8. NITROFURANTOIN. [Concomitant]
     Active Substance: NITROFURANTOIN
     Indication: URINARY TRACT DISORDER
     Route: 065
  9. DUTASTERIDE /TAMSULOSIN [Concomitant]
     Dosage: .4 MG + 0.5 MG
     Route: 065
  10. CARVEDILOL. [Concomitant]
     Active Substance: CARVEDILOL
     Indication: CARDIAC DISORDER
     Route: 065
  11. SPIRONOLACTONE. [Concomitant]
     Active Substance: SPIRONOLACTONE
     Route: 065
  12. VENLAFAXINE [Concomitant]
     Active Substance: VENLAFAXINE HYDROCHLORIDE
     Indication: MENTAL DISORDER
     Route: 065
  13. AMINOPHYLLINE [Concomitant]
     Active Substance: AMINOPHYLLINE
     Indication: LUNG DISORDER
     Route: 065
     Dates: start: 2010

REACTIONS (4)
  - Dehydration [Not Recovered/Not Resolved]
  - Gastrointestinal sounds abnormal [Not Recovered/Not Resolved]
  - Drug ineffective [Not Recovered/Not Resolved]
  - Fluid retention [Not Recovered/Not Resolved]

NARRATIVE: CASE EVENT DATE: 2014
